FAERS Safety Report 15075612 (Version 1)
Quarter: 2018Q2

REPORT INFORMATION
  Report Type: Spontaneous
  Country: US (occurrence: US)
  Receive Date: 20180627
  Receipt Date: 20180627
  Transmission Date: 20180711
  Serious: No
  Sender: FDA-Public Use
  Company Number: US-SA-2018SA162959

PATIENT
  Sex: Female

DRUGS (3)
  1. DUPIXENT [Suspect]
     Active Substance: DUPILUMAB
     Indication: DERMATITIS ATOPIC
     Dosage: 300 MG, QOW
     Route: 058
  2. CETRIZINE [Concomitant]
     Active Substance: CETIRIZINE HYDROCHLORIDE
  3. FLONASE [FLUTICASONE PROPIONATE] [Concomitant]

REACTIONS (5)
  - Seasonal allergy [Unknown]
  - Condition aggravated [Unknown]
  - Sneezing [Unknown]
  - Eye pruritus [Unknown]
  - Cough [Unknown]

NARRATIVE: CASE EVENT DATE: 2018
